FAERS Safety Report 6611373-3 (Version None)
Quarter: 2010Q1

REPORT INFORMATION
  Report Type: 
  Country: None (occurrence: None)
  Receive Date: 20100303
  Receipt Date: 20100224
  Transmission Date: 20100710
  Serious: Yes (Other)
  Sender: FDA-Public Use
  Company Number: US-NAPPMUNDI-USA-2009-0038228

PATIENT
  Sex: Female

DRUGS (4)
  1. OXYCONTIN [Suspect]
     Indication: BACK PAIN
     Dosage: 20 MG, SEE TEXT
     Dates: start: 19970101, end: 20010801
  2. OXYCONTIN [Suspect]
     Indication: NECK PAIN
  3. OXYCONTIN [Suspect]
     Indication: ARTHRALGIA
  4. OXYCONTIN [Suspect]
     Indication: MYALGIA

REACTIONS (9)
  - AMNESIA [None]
  - DEPRESSION [None]
  - DISTURBANCE IN ATTENTION [None]
  - DRUG DEPENDENCE [None]
  - DRUG WITHDRAWAL SYNDROME [None]
  - INJURY [None]
  - SPEECH DISORDER [None]
  - SURGERY [None]
  - SYSTEMIC LUPUS ERYTHEMATOSUS [None]
